FAERS Safety Report 23154085 (Version 2)
Quarter: 2023Q4

REPORT INFORMATION
  Report Type: Report from Study
  Country: US (occurrence: None)
  Receive Date: 20231107
  Receipt Date: 20231208
  Transmission Date: 20240110
  Serious: Yes (Death)
  Sender: FDA-Public Use
  Company Number: 2023A252160

PATIENT
  Age: 964 Month
  Sex: Male

DRUGS (4)
  1. CALQUENCE [Suspect]
     Active Substance: ACALABRUTINIB
     Indication: Leukaemia
     Dosage: 100MG 2X^S
     Route: 048
     Dates: end: 20230829
  2. CLOPIDOGRIL BISULFATE [Concomitant]
     Indication: Blood disorder
     Dosage: 75.0MG UNKNOWN
  3. ELIQUIS [Concomitant]
     Active Substance: APIXABAN
     Indication: Blood disorder
     Dosage: 75.0MG UNKNOWN
  4. FUROSEMIDE [Concomitant]
     Active Substance: FUROSEMIDE
     Indication: Electrolyte imbalance
     Dosage: 40.0MG UNKNOWN

REACTIONS (1)
  - Pneumonia [Fatal]

NARRATIVE: CASE EVENT DATE: 20230801
